FAERS Safety Report 17045934 (Version 1)
Quarter: 2019Q4

REPORT INFORMATION
  Report Type: Spontaneous
  Country: US (occurrence: US)
  Receive Date: 20191119
  Receipt Date: 20191119
  Transmission Date: 20200122
  Serious: No
  Sender: FDA-Public Use
  Company Number: US-B.I. PHARMACEUTICALS,INC./RIDGEFIELD-2019-BI-113685

PATIENT
  Age: 65 Year
  Sex: Male
  Weight: 90.7 kg

DRUGS (11)
  1. GOCOVRI [Suspect]
     Active Substance: AMANTADINE
     Route: 048
  2. SINEMET [Concomitant]
     Active Substance: CARBIDOPA\LEVODOPA
     Indication: PRODUCT USED FOR UNKNOWN INDICATION
     Dosage: 25-100 MG
     Route: 065
  3. TRANXENE [Concomitant]
     Active Substance: CLORAZEPATE DIPOTASSIUM
     Indication: PRODUCT USED FOR UNKNOWN INDICATION
     Route: 065
  4. MIRAPEX [Suspect]
     Active Substance: PRAMIPEXOLE DIHYDROCHLORIDE
     Indication: PRODUCT USED FOR UNKNOWN INDICATION
     Route: 065
     Dates: end: 20190709
  5. PANTOPRAZOLE [Concomitant]
     Active Substance: PANTOPRAZOLE
     Indication: PRODUCT USED FOR UNKNOWN INDICATION
     Route: 065
  6. MIRAPEX [Suspect]
     Active Substance: PRAMIPEXOLE DIHYDROCHLORIDE
     Dosage: RESTARTED, DOSE NOT REPORTED.
     Route: 065
     Dates: start: 20190713
  7. GOCOVRI [Suspect]
     Active Substance: AMANTADINE
     Indication: DYSKINESIA
     Dosage: DF: EXTENDED-RELEASE CAPSULE
     Route: 048
     Dates: start: 201906, end: 20190715
  8. GOCOVRI [Suspect]
     Active Substance: AMANTADINE
     Dosage: DF: EXTENDED-RELEASE CAPSULE
     Route: 048
     Dates: start: 20190601, end: 201906
  9. ENTACAPONE. [Concomitant]
     Active Substance: ENTACAPONE
     Indication: PRODUCT USED FOR UNKNOWN INDICATION
     Route: 065
  10. GOCOVRI [Suspect]
     Active Substance: AMANTADINE
     Dosage: DF: EXTENDED-RELEASE CAPSULE
     Route: 048
     Dates: start: 20190716, end: 201907
  11. RESTASIS [Concomitant]
     Active Substance: CYCLOSPORINE
     Indication: PRODUCT USED FOR UNKNOWN INDICATION
     Route: 065

REACTIONS (12)
  - Asthenia [Recovered/Resolved]
  - Balance disorder [Recovered/Resolved]
  - Intentional dose omission [Unknown]
  - Insomnia [Recovering/Resolving]
  - Tremor [Recovered/Resolved]
  - Parkinson^s disease [Unknown]
  - Anxiety [Recovered/Resolved]
  - Visual acuity reduced [Recovered/Resolved]
  - Feeling abnormal [Recovered/Resolved]
  - Malaise [Recovered/Resolved]
  - Dizziness [Recovered/Resolved]
  - Therapeutic product effect decreased [Unknown]

NARRATIVE: CASE EVENT DATE: 201906
